FAERS Safety Report 6695011-X (Version None)
Quarter: 2010Q2

REPORT INFORMATION
  Report Type: 
  Country: None (occurrence: None)
  Receive Date: 20100423
  Receipt Date: 20100412
  Transmission Date: 20101027
  Serious: Yes (Hospitalization)
  Sender: FDA-Public Use
  Company Number: PHEH2010US03361

PATIENT
  Sex: Male

DRUGS (7)
  1. DIOVAN HCT [Suspect]
     Dosage: 160/25 MG
  2. PRAVACHOL [Concomitant]
     Dosage: 40 MG, UNK
  3. QUINAPRIL [Concomitant]
     Dosage: 40 MG, UNK
  4. PREDNISONE [Concomitant]
     Dosage: 20 MG, 2 TABLETS DAILY
     Route: 048
     Dates: start: 20100328, end: 20100401
  5. TOPROL-XL [Concomitant]
     Dosage: 200 MG, 24 HOUR
  6. BENICAR HCT [Concomitant]
     Dosage: 40/25 MG
  7. CLONIDINE [Concomitant]
     Dosage: 0.1 MG, UNK

REACTIONS (6)
  - CHEILITIS [None]
  - FLUSHING [None]
  - HYPERSENSITIVITY [None]
  - HYPERTENSION [None]
  - LIP SWELLING [None]
  - SWELLING FACE [None]
